FAERS Safety Report 16173144 (Version 2)
Quarter: 2019Q2

REPORT INFORMATION
  Report Type: Spontaneous
  Country: TW (occurrence: TW)
  Receive Date: 20190409
  Receipt Date: 20190412
  Transmission Date: 20190711
  Serious: Yes (Life-Threatening, Hospitalization, Other)
  Sender: FDA-Public Use
  Company Number: TW-SA-2019SA093763

PATIENT
  Age: 73 Year
  Sex: Male

DRUGS (4)
  1. PIRACETAM [Concomitant]
     Active Substance: PIRACETAM
     Indication: ISCHAEMIC STROKE
     Dosage: 3 MG, QID
     Route: 065
  2. HEPARIN [Suspect]
     Active Substance: HEPARIN SODIUM
     Dosage: 10000 IU, TOTAL, DIVIDED INTO FOUR TIMES
  3. ENOXAPARIN SODIUM. [Suspect]
     Active Substance: ENOXAPARIN SODIUM
     Indication: ISCHAEMIC STROKE
     Dosage: 70 MG, 1X
     Route: 065
  4. ACETYLSALICYLIC ACID [Suspect]
     Active Substance: ASPIRIN
     Indication: ISCHAEMIC STROKE
     Dosage: 100 MG, UNK
     Route: 065

REACTIONS (6)
  - Haemorrhage intracranial [Recovered/Resolved with Sequelae]
  - Dysarthria [Unknown]
  - Ischaemic stroke [Recovered/Resolved]
  - Intracranial haematoma [Recovered/Resolved with Sequelae]
  - Hemiparesis [Unknown]
  - Haematoma [Recovered/Resolved]
